FAERS Safety Report 13053828 (Version 1)
Quarter: 2016Q4

REPORT INFORMATION
  Report Type: Spontaneous
  Country: GB (occurrence: GB)
  Receive Date: 20161222
  Receipt Date: 20161222
  Transmission Date: 20170207
  Serious: Yes (Other)
  Sender: FDA-Public Use
  Company Number: GB-CLINIGEN GROUP PLC/ CLINIGEN HEALTHCARE LTD-E2B_00002873

PATIENT
  Age: 34 Year
  Sex: Female

DRUGS (4)
  1. FOSCARNET?SODIUM [Suspect]
     Active Substance: FOSCARNET SODIUM
     Indication: PNEUMONITIS
  2. FOSCAVIR [Suspect]
     Active Substance: FOSCARNET SODIUM
     Indication: PNEUMONITIS
     Route: 042
  3. FOSCARNET?SODIUM [Suspect]
     Active Substance: FOSCARNET SODIUM
     Indication: CYTOMEGALOVIRUS INFECTION
     Route: 042
  4. FOSCARNET?SODIUM [Suspect]
     Active Substance: FOSCARNET SODIUM
     Indication: CYTOMEGALOVIRUS INFECTION
     Route: 042

REACTIONS (2)
  - Neuropathy peripheral [Unknown]
  - Nephropathy toxic [Unknown]
